FAERS Safety Report 4681191-4 (Version None)
Quarter: 2005Q2

REPORT INFORMATION
  Report Type: 
  Country: None (occurrence: None)
  Receive Date: 20050602
  Receipt Date: 20050421
  Transmission Date: 20051028
  Serious: Yes (Death)
  Sender: FDA-Public Use
  Company Number: 2005S1002695

PATIENT
  Age: 76 Year
  Sex: Female

DRUGS (6)
  1. CLOZAPINE [Suspect]
     Indication: HALLUCINATION
     Dosage: 12.5 MG; HS; PO
     Route: 048
     Dates: start: 20020729, end: 20050113
  2. CARBIDOPA AND LEVODOPA [Concomitant]
  3. NYSTATIN [Concomitant]
  4. SUCRALFATE [Concomitant]
  5. IBUPROFEN [Concomitant]
  6. MEGESTROL [Concomitant]

REACTIONS (1)
  - METASTASIS [None]
